FAERS Safety Report 16923874 (Version 3)
Quarter: 2019Q4

REPORT INFORMATION
  Report Type: Report from Study
  Country: TR (occurrence: TR)
  Receive Date: 20191016
  Receipt Date: 20191114
  Transmission Date: 20200122
  Serious: Yes (Hospitalization)
  Sender: FDA-Public Use
  Company Number: TR-ROCHE-2239295

PATIENT
  Age: 42 Year
  Sex: Female
  Weight: 58 kg

DRUGS (70)
  1. PHENIRAMINE [Concomitant]
     Active Substance: PHENIRAMINE
     Route: 065
     Dates: start: 20190311, end: 20190311
  2. PHENIRAMINE [Concomitant]
     Active Substance: PHENIRAMINE
     Route: 065
     Dates: start: 20190424, end: 20190424
  3. ULCURAN [Concomitant]
     Active Substance: RANITIDINE HYDROCHLORIDE
     Route: 065
     Dates: start: 20190311, end: 20190311
  4. ULCURAN [Concomitant]
     Active Substance: RANITIDINE HYDROCHLORIDE
     Route: 065
     Dates: start: 20190410, end: 20190410
  5. DEKORT [DEXAMETHASONE] [Concomitant]
     Route: 065
     Dates: start: 20190524
  6. DILTIZEM [Concomitant]
     Route: 065
     Dates: start: 20190614
  7. GEMCITABINE. [Suspect]
     Active Substance: GEMCITABINE
     Indication: TRIPLE NEGATIVE BREAST CANCER
     Dosage: MOST RECENT DOSE OF GEMCITABINE PRIOR TO PNEUMONIA: 28/DEC/2018?DATE OF MOST RECENT DOSE OF GEMCITAB
     Route: 042
     Dates: start: 20181228
  8. FOSTER [Concomitant]
     Active Substance: BECLOMETHASONE\FORMOTEROL
     Route: 065
     Dates: start: 20190118, end: 20190201
  9. EMEND [Concomitant]
     Active Substance: APREPITANT
     Route: 065
     Dates: start: 20190424, end: 20190426
  10. ZOFRAN [Concomitant]
     Active Substance: ONDANSETRON HYDROCHLORIDE
     Route: 065
     Dates: start: 20190204, end: 20190204
  11. ZOFRAN [Concomitant]
     Active Substance: ONDANSETRON HYDROCHLORIDE
     Route: 065
     Dates: start: 20190516, end: 20190516
  12. DEKORT [DEXAMETHASONE] [Concomitant]
     Indication: PREMEDICATION
     Route: 065
     Dates: start: 20181228
  13. PHENIRAMINE [Concomitant]
     Active Substance: PHENIRAMINE
     Route: 065
     Dates: start: 20190516, end: 20190516
  14. ULCURAN [Concomitant]
     Active Substance: RANITIDINE HYDROCHLORIDE
     Route: 065
     Dates: start: 20190502, end: 20190502
  15. ULCURAN [Concomitant]
     Active Substance: RANITIDINE HYDROCHLORIDE
     Route: 065
     Dates: start: 20181228, end: 20181228
  16. ULCURAN [Concomitant]
     Active Substance: RANITIDINE HYDROCHLORIDE
     Route: 065
     Dates: start: 20190524, end: 20190524
  17. EMEND [Concomitant]
     Active Substance: APREPITANT
     Route: 065
     Dates: start: 20190125, end: 20190127
  18. EMEND [Concomitant]
     Active Substance: APREPITANT
     Route: 065
     Dates: start: 20190516, end: 20190516
  19. ZOFRAN [Concomitant]
     Active Substance: ONDANSETRON HYDROCHLORIDE
     Route: 065
     Dates: start: 20190402, end: 20190402
  20. DEKORT [DEXAMETHASONE] [Concomitant]
     Route: 065
     Dates: start: 20190218
  21. DEKORT [DEXAMETHASONE] [Concomitant]
     Route: 065
     Dates: start: 20190402
  22. AUGMENTIN BID [Concomitant]
     Route: 065
     Dates: start: 20180118, end: 20190201
  23. PHENIRAMINE [Concomitant]
     Active Substance: PHENIRAMINE
     Route: 065
     Dates: start: 20190225, end: 20190225
  24. ULCURAN [Concomitant]
     Active Substance: RANITIDINE HYDROCHLORIDE
     Route: 065
     Dates: start: 20190204, end: 20190204
  25. ZOFRAN [Concomitant]
     Active Substance: ONDANSETRON HYDROCHLORIDE
     Route: 065
     Dates: start: 20190218, end: 20190218
  26. DEKORT [DEXAMETHASONE] [Concomitant]
     Route: 065
     Dates: start: 20190204
  27. DEKORT [DEXAMETHASONE] [Concomitant]
     Route: 065
     Dates: start: 20190225
  28. CARBOPLATIN. [Suspect]
     Active Substance: CARBOPLATIN
     Indication: TRIPLE NEGATIVE BREAST CANCER
     Dosage: MOST RECENT DOSE OF CARBOPLATIN PRIOR TO PNEUMONIA: 28/DEC/2018?DATE OF MOST RECENT DOSE OF CARBOPLA
     Route: 042
     Dates: start: 20181228
  29. CIPRO [Concomitant]
     Active Substance: CIPROFLOXACIN HYDROCHLORIDE
     Route: 065
     Dates: start: 20190118, end: 20190208
  30. PHENIRAMINE [Concomitant]
     Active Substance: PHENIRAMINE
     Route: 065
     Dates: start: 20190320, end: 20190320
  31. ULCURAN [Concomitant]
     Active Substance: RANITIDINE HYDROCHLORIDE
     Route: 065
     Dates: start: 20190218, end: 20190218
  32. ULCURAN [Concomitant]
     Active Substance: RANITIDINE HYDROCHLORIDE
     Route: 065
     Dates: start: 20190225, end: 20190225
  33. EMEND [Concomitant]
     Active Substance: APREPITANT
     Route: 065
     Dates: start: 20190218, end: 20190220
  34. ZOFRAN [Concomitant]
     Active Substance: ONDANSETRON HYDROCHLORIDE
     Route: 065
     Dates: start: 20190225, end: 20190225
  35. ZOFRAN [Concomitant]
     Active Substance: ONDANSETRON HYDROCHLORIDE
     Route: 065
     Dates: start: 20190410, end: 20190410
  36. ZOFRAN [Concomitant]
     Active Substance: ONDANSETRON HYDROCHLORIDE
     Route: 065
     Dates: start: 20190424, end: 20190424
  37. ZOFRAN [Concomitant]
     Active Substance: ONDANSETRON HYDROCHLORIDE
     Route: 065
     Dates: start: 20190516, end: 20190516
  38. METPAMID [METOCLOPRAMIDE HYDROCHLORIDE] [Concomitant]
     Indication: PNEUMONIA
     Route: 065
     Dates: start: 20190318
  39. AUGMENTIN BID [Concomitant]
     Route: 065
     Dates: start: 20190612, end: 20190615
  40. PHENIRAMINE [Concomitant]
     Active Substance: PHENIRAMINE
     Route: 065
     Dates: start: 20190218, end: 20190218
  41. PHENIRAMINE [Concomitant]
     Active Substance: PHENIRAMINE
     Route: 065
     Dates: start: 20190402, end: 20190402
  42. PHENIRAMINE [Concomitant]
     Active Substance: PHENIRAMINE
     Route: 065
     Dates: start: 20190502, end: 20190502
  43. ULCURAN [Concomitant]
     Active Substance: RANITIDINE HYDROCHLORIDE
     Route: 065
     Dates: start: 20190402, end: 20190402
  44. ULCURAN [Concomitant]
     Active Substance: RANITIDINE HYDROCHLORIDE
     Route: 065
     Dates: start: 20190424, end: 20190424
  45. ULCURAN [Concomitant]
     Active Substance: RANITIDINE HYDROCHLORIDE
     Route: 065
     Dates: start: 20190516, end: 20190516
  46. ZOFRAN [Concomitant]
     Active Substance: ONDANSETRON HYDROCHLORIDE
     Route: 065
     Dates: start: 20190125, end: 20190125
  47. ZOFRAN [Concomitant]
     Active Substance: ONDANSETRON HYDROCHLORIDE
     Route: 065
     Dates: start: 20190502, end: 20190502
  48. PREDNOL [METHYLPREDNISOLONE] [Concomitant]
     Route: 065
     Dates: start: 20190614, end: 20190617
  49. PHENIRAMINE [Concomitant]
     Active Substance: PHENIRAMINE
     Route: 065
     Dates: start: 20181228, end: 20181228
  50. PHENIRAMINE [Concomitant]
     Active Substance: PHENIRAMINE
     Route: 065
     Dates: start: 20190524, end: 20190524
  51. ULCURAN [Concomitant]
     Active Substance: RANITIDINE HYDROCHLORIDE
     Route: 065
     Dates: start: 20190320, end: 20190320
  52. EMEND [Concomitant]
     Active Substance: APREPITANT
     Route: 065
     Dates: start: 20190402, end: 20190404
  53. ZOFRAN [Concomitant]
     Active Substance: ONDANSETRON HYDROCHLORIDE
     Indication: PROPHYLAXIS
     Route: 065
     Dates: start: 20190524, end: 20190524
  54. ZOFRAN [Concomitant]
     Active Substance: ONDANSETRON HYDROCHLORIDE
     Route: 065
     Dates: start: 20190320, end: 20190320
  55. DEKORT [DEXAMETHASONE] [Concomitant]
     Route: 065
     Dates: start: 20190320
  56. DEKORT [DEXAMETHASONE] [Concomitant]
     Route: 065
     Dates: start: 20190502
  57. ATEZOLIZUMAB. [Suspect]
     Active Substance: ATEZOLIZUMAB
     Indication: TRIPLE NEGATIVE BREAST CANCER
     Dosage: 1200 MG/20ML ?MOST RECENT DOSE OF BLINDED ATEZOLIZUMAB: 28/DEC/2018?DATE OF MOST RECENT DOSE OF BLIN
     Route: 041
     Dates: start: 20181228
  58. PHENIRAMINE [Concomitant]
     Active Substance: PHENIRAMINE
     Indication: PROPHYLAXIS
     Route: 065
     Dates: start: 20190125, end: 20190125
  59. PHENIRAMINE [Concomitant]
     Active Substance: PHENIRAMINE
     Route: 065
     Dates: start: 20190204, end: 20190204
  60. PHENIRAMINE [Concomitant]
     Active Substance: PHENIRAMINE
     Route: 065
     Dates: start: 20190410, end: 20190410
  61. ULCURAN [Concomitant]
     Active Substance: RANITIDINE HYDROCHLORIDE
     Indication: PROPHYLAXIS
     Route: 065
     Dates: start: 20190125, end: 20190125
  62. EMEND [Concomitant]
     Active Substance: APREPITANT
     Route: 065
     Dates: start: 20190311, end: 20190313
  63. ZOFRAN [Concomitant]
     Active Substance: ONDANSETRON HYDROCHLORIDE
     Route: 065
     Dates: start: 20190311, end: 20190311
  64. GRANEXA [Concomitant]
     Route: 065
     Dates: start: 20181228
  65. DEKORT [DEXAMETHASONE] [Concomitant]
     Route: 065
     Dates: start: 20190125
  66. DEKORT [DEXAMETHASONE] [Concomitant]
     Route: 065
     Dates: start: 20190311
  67. DEKORT [DEXAMETHASONE] [Concomitant]
     Route: 065
     Dates: start: 20190410
  68. DEKORT [DEXAMETHASONE] [Concomitant]
     Route: 065
     Dates: start: 20190424
  69. DEKORT [DEXAMETHASONE] [Concomitant]
     Route: 065
     Dates: start: 20190516
  70. CORDARONE [Concomitant]
     Active Substance: AMIODARONE HYDROCHLORIDE
     Route: 065
     Dates: start: 20190614, end: 20190619

REACTIONS (3)
  - Atrial fibrillation [Recovered/Resolved]
  - Atrial fibrillation [Recovered/Resolved]
  - Pneumonia [Recovered/Resolved]

NARRATIVE: CASE EVENT DATE: 20181230
